FAERS Safety Report 12404329 (Version 2)
Quarter: 2016Q2

REPORT INFORMATION
  Report Type: Spontaneous
  Country: JP (occurrence: JP)
  Receive Date: 20160525
  Receipt Date: 20160608
  Transmission Date: 20160815
  Serious: Yes (Death)
  Sender: FDA-Public Use
  Company Number: JP-CELGENEUS-JPN-2015115088

PATIENT
  Sex: Male

DRUGS (1)
  1. REVLIMID [Suspect]
     Active Substance: LENALIDOMIDE
     Indication: PLASMA CELL MYELOMA
     Dosage: 5 MILLIGRAM
     Route: 048
     Dates: start: 20150326, end: 20151002

REACTIONS (4)
  - Plasma cell myeloma [Fatal]
  - Myelodysplastic syndrome [Fatal]
  - Full blood count decreased [Unknown]
  - Hepatic failure [Fatal]

NARRATIVE: CASE EVENT DATE: 2015
